FAERS Safety Report 17191770 (Version 1)
Quarter: 2019Q4

REPORT INFORMATION
  Report Type: Spontaneous
  Country: CO (occurrence: CO)
  Receive Date: 20191223
  Receipt Date: 20191223
  Transmission Date: 20200122
  Serious: Yes (Other)
  Sender: FDA-Public Use
  Company Number: CO-PFIZER INC-2019268795

PATIENT
  Age: 58 Year
  Sex: Female

DRUGS (2)
  1. XELJANZ XR [Suspect]
     Active Substance: TOFACITINIB CITRATE
     Indication: PSORIATIC ARTHROPATHY
     Dosage: 11 MG, 1X/DAY
     Route: 048
     Dates: start: 20190620
  2. METHOTREXATE. [Concomitant]
     Active Substance: METHOTREXATE

REACTIONS (11)
  - Nausea [Unknown]
  - Headache [Unknown]
  - Dizziness [Recovered/Resolved]
  - Hepatitis [Unknown]
  - Gastritis [Unknown]
  - Skin discolouration [Unknown]
  - Off label use [Unknown]
  - Product use in unapproved indication [Unknown]
  - Pyrexia [Unknown]
  - Abdominal distension [Recovered/Resolved]
  - Feeding disorder [Unknown]

NARRATIVE: CASE EVENT DATE: 20190620
